FAERS Safety Report 4388871-9 (Version None)
Quarter: 2004Q2

REPORT INFORMATION
  Report Type: 
  Country: None (occurrence: None)
  Receive Date: 20040624
  Receipt Date: 20040614
  Transmission Date: 20050107
  Serious: Yes (Hospitalization, Other)
  Sender: FDA-Public Use
  Company Number: HQWYE446714JUN04

PATIENT
  Age: 45 Year
  Sex: Female

DRUGS (7)
  1. EUPANTOL (PANTOPRAZOLE, TABLET, DELAYED RELEASE) [Suspect]
     Route: 048
     Dates: start: 20040413, end: 20040417
  2. PIROXICAM [Suspect]
     Route: 048
     Dates: start: 20040101, end: 20040417
  3. LAMALINE (BELLADONNA EXTRACT/CAFFEINE/OPIUM TINCTURE/PARACETAMOL) [Concomitant]
  4. MYOLASTAN (TETRAZEPAM) [Concomitant]
  5. RENUTRYL 500 (CASEIN/ELECTROLYTES NOS/FASTS NOS/ LACTOPROTEIN/STARCH H [Concomitant]
  6. PARACETAMOL (PARACETAMOL) [Concomitant]
  7. TRAMADOL HCL [Concomitant]

REACTIONS (2)
  - AGRANULOCYTOSIS [None]
  - DRUG TOXICITY [None]
